FAERS Safety Report 8888712 (Version 4)
Quarter: 2012Q4

REPORT INFORMATION
  Report Type: 
  Country: GB (occurrence: GB)
  Receive Date: 20121106
  Receipt Date: 20121218
  Transmission Date: 20130627
  Serious: Yes (Other)
  Sender: FDA-Public Use
  Company Number: GB-GLAXOSMITHKLINE-B0840910A

PATIENT
  Age: 22 Year
  Sex: Female
  Weight: 75 kg

DRUGS (8)
  1. REVOLADE [Suspect]
     Indication: IDIOPATHIC THROMBOCYTOPENIC PURPURA
     Dosage: 75MG Per day
     Dates: start: 20120829, end: 20120920
  2. NPLATE [Suspect]
     Indication: IDIOPATHIC THROMBOCYTOPENIC PURPURA
     Route: 058
     Dates: start: 20120418
  3. PREDNISOLONE [Concomitant]
     Indication: TUBULOINTERSTITIAL NEPHRITIS
     Dates: start: 20120520, end: 201209
  4. IMMUNOGLOBULIN [Concomitant]
     Route: 042
     Dates: start: 2012
  5. DEXAMETHASONE [Concomitant]
     Route: 042
     Dates: start: 2012
  6. METHYLPREDNISOLONE [Concomitant]
     Dates: start: 2012
  7. RITUXIMAB [Concomitant]
     Dates: start: 20120420
  8. VINCRISTINE [Concomitant]
     Dates: start: 20120420

REACTIONS (9)
  - Myelofibrosis [Not Recovered/Not Resolved]
  - Sepsis [Unknown]
  - Tubulointerstitial nephritis [Unknown]
  - Drug ineffective [Not Recovered/Not Resolved]
  - Platelet count decreased [Unknown]
  - Pyrexia [Unknown]
  - Rash [Unknown]
  - Neutropenia [Unknown]
  - Haemoglobin decreased [Unknown]
